FAERS Safety Report 11147531 (Version 1)
Quarter: 2015Q2

REPORT INFORMATION
  Report Type: Spontaneous
  Country: US (occurrence: US)
  Receive Date: 20150529
  Receipt Date: 20150529
  Transmission Date: 20150821
  Serious: Yes (Hospitalization)
  Sender: FDA-Public Use
  Company Number: US-009507513-1505USA011126

PATIENT
  Age: 56 Year
  Sex: Male

DRUGS (4)
  1. ISENTRESS [Suspect]
     Active Substance: RALTEGRAVIR POTASSIUM
     Indication: ANTIVIRAL TREATMENT
     Dosage: 400 MG, BID
     Route: 048
     Dates: start: 2000
  2. COUMADIN [Concomitant]
     Active Substance: WARFARIN SODIUM
  3. KALETRA [Concomitant]
     Active Substance: LOPINAVIR\RITONAVIR
  4. SIRTURO [Concomitant]
     Active Substance: BEDAQUILINE FUMARATE

REACTIONS (2)
  - Rash generalised [Not Recovered/Not Resolved]
  - Thrombosis [Not Recovered/Not Resolved]

NARRATIVE: CASE EVENT DATE: 201504
